FAERS Safety Report 9522327 (Version 1)
Quarter: 2013Q3

REPORT INFORMATION
  Report Type: Spontaneous
  Country: US (occurrence: None)
  Receive Date: 20130911
  Receipt Date: 20130911
  Transmission Date: 20140515
  Serious: No
  Sender: FDA-Public Use
  Company Number: AEUSA201200530

PATIENT
  Age: 65 Year
  Sex: Female
  Weight: 55.34 kg

DRUGS (5)
  1. GAMUNEX-C (10 PCT) [Suspect]
     Indication: MULTIPLE SCLEROSIS
     Route: 042
     Dates: start: 20121008, end: 20121107
  2. RESTASIS [Concomitant]
  3. MULTIVITAMIN / 00097801/ [Concomitant]
  4. DIPHENHYDRAMINE [Concomitant]
  5. TYLENOL /00020001/ [Concomitant]

REACTIONS (8)
  - Migraine with aura [None]
  - Dry eye [None]
  - Dizziness [None]
  - Pain in extremity [None]
  - Arthralgia [None]
  - Pain in extremity [None]
  - Back pain [None]
  - Dehydration [None]
